FAERS Safety Report 25066028 (Version 1)
Quarter: 2025Q1

REPORT INFORMATION
  Report Type: Spontaneous
  Country: CO (occurrence: CO)
  Receive Date: 20250312
  Receipt Date: 20250312
  Transmission Date: 20250409
  Serious: Yes (Life-Threatening, Hospitalization, Other)
  Sender: ABBVIE
  Company Number: CO-ABBVIE-6172810

PATIENT
  Age: 48 Year
  Sex: Female

DRUGS (1)
  1. OZURDEX [Suspect]
     Active Substance: DEXAMETHASONE
     Indication: Macular ischaemia
     Route: 050
     Dates: start: 20250131, end: 20250131

REACTIONS (5)
  - Endophthalmitis [Not Recovered/Not Resolved]
  - Eye pain [Recovering/Resolving]
  - Diabetic ketoacidosis [Unknown]
  - Nosocomial infection [Not Recovered/Not Resolved]
  - Blepharospasm [Recovering/Resolving]

NARRATIVE: CASE EVENT DATE: 20250101
